FAERS Safety Report 15960021 (Version 2)
Quarter: 2019Q1

REPORT INFORMATION
  Report Type: Spontaneous
  Country: US (occurrence: US)
  Receive Date: 20190214
  Receipt Date: 20190215
  Transmission Date: 20190417
  Serious: Yes (Other)
  Sender: FDA-Public Use
  Company Number: US-GLAXOSMITHKLINE-US2019GSK024723

PATIENT
  Age: 65 Year
  Sex: Female

DRUGS (2)
  1. LAMICTAL [Suspect]
     Active Substance: LAMOTRIGINE
     Indication: PRODUCT USED FOR UNKNOWN INDICATION
     Dosage: UNK UNK, QD
     Route: 065
     Dates: start: 20170222
  2. ABILIFY [Suspect]
     Active Substance: ARIPIPRAZOLE
     Indication: PRODUCT USED FOR UNKNOWN INDICATION
     Dosage: UNK UNK, QD

REACTIONS (16)
  - Urinary tract infection [Unknown]
  - Gastrooesophageal reflux disease [Unknown]
  - Muscular weakness [Unknown]
  - Constipation [Unknown]
  - Type 1 diabetes mellitus [Unknown]
  - Muscle atrophy [Unknown]
  - Dysphagia [Unknown]
  - Hallucination [Unknown]
  - Cerebral infarction [Unknown]
  - Bipolar disorder [Unknown]
  - Nail dystrophy [Unknown]
  - Restless legs syndrome [Unknown]
  - Coordination abnormal [Unknown]
  - Renal impairment [Unknown]
  - Major depression [Unknown]
  - Diabetic neuropathy [Unknown]

NARRATIVE: CASE EVENT DATE: 20170904
